FAERS Safety Report 6041951-4 (Version None)
Quarter: 2009Q1

REPORT INFORMATION
  Report Type: 
  Country: None (occurrence: None)
  Receive Date: 20090116
  Receipt Date: 20090108
  Transmission Date: 20090719
  Serious: Yes (Hospitalization)
  Sender: FDA-Public Use
  Company Number: AT-PFIZER INC-2008099436

PATIENT

DRUGS (1)
  1. SORTIS [Suspect]
     Indication: BLOOD TRIGLYCERIDES INCREASED
     Route: 048
     Dates: start: 20060101, end: 20080101

REACTIONS (3)
  - FEAR OF DEATH [None]
  - INSOMNIA [None]
  - MUSCLE SPASMS [None]
